FAERS Safety Report 23981072 (Version 1)
Quarter: 2024Q2

REPORT INFORMATION
  Report Type: Spontaneous
  Country: US (occurrence: None)
  Receive Date: 20240614
  Receipt Date: 20240614
  Transmission Date: 20240716
  Serious: Yes (Hospitalization)
  Sender: FDA-Public Use
  Company Number: None

PATIENT
  Age: 70 Year
  Sex: Male
  Weight: 99 kg

DRUGS (1)
  1. CABENUVA [Suspect]
     Active Substance: CABOTEGRAVIR\RILPIVIRINE
     Indication: HIV infection
     Dosage: OTHER QUANTITY : 600 PLUS 900 MG;?
     Route: 030
     Dates: start: 20240424, end: 20240505

REACTIONS (14)
  - Arthralgia [None]
  - Arthralgia [None]
  - Arthralgia [None]
  - Arthralgia [None]
  - Gait disturbance [None]
  - Fall [None]
  - Screaming [None]
  - Myalgia [None]
  - Headache [None]
  - Dyspnoea [None]
  - Nausea [None]
  - Eye irritation [None]
  - Arthralgia [None]
  - Urticaria [None]

NARRATIVE: CASE EVENT DATE: 20240526
